FAERS Safety Report 11929047 (Version 1)
Quarter: 2016Q1

REPORT INFORMATION
  Report Type: Spontaneous
  Country: US (occurrence: US)
  Receive Date: 20160120
  Receipt Date: 20160120
  Transmission Date: 20160526
  Serious: Yes (Other)
  Sender: FDA-Public Use
  Company Number: US-ROCHE-1695894

PATIENT
  Sex: Female

DRUGS (1)
  1. PEGASYS [Suspect]
     Active Substance: PEGINTERFERON ALFA-2A
     Indication: MALIGNANT MELANOMA
     Route: 058
     Dates: start: 20151117

REACTIONS (3)
  - Panic attack [Unknown]
  - Mental disorder [Unknown]
  - Suicidal ideation [Unknown]
